FAERS Safety Report 7317136-8 (Version None)
Quarter: 2011Q1

REPORT INFORMATION
  Report Type: 
  Country: None (occurrence: None)
  Receive Date: 20110226
  Receipt Date: 20100930
  Transmission Date: 20110831
  Serious: No
  Sender: FDA-Public Use
  Company Number: US-ALLERGAN-1012620US

PATIENT
  Age: 22 Year
  Sex: Male

DRUGS (2)
  1. BOTOXA? [Suspect]
     Indication: MUSCLE SPASTICITY
     Dosage: 200 UNITS, SINGLE
     Route: 030
     Dates: start: 20100923, end: 20100923
  2. ANTIBIOTIC UNSPECIFIED [Concomitant]
     Indication: PRODUCT USED FOR UNKNOWN INDICATION

REACTIONS (3)
  - RASH ERYTHEMATOUS [None]
  - RASH PRURITIC [None]
  - PAIN OF SKIN [None]
